FAERS Safety Report 24607951 (Version 1)
Quarter: 2024Q4

REPORT INFORMATION
  Report Type: Spontaneous
  Country: US (occurrence: US)
  Receive Date: 20241112
  Receipt Date: 20241112
  Transmission Date: 20250115
  Serious: No
  Sender: JOHNSON AND JOHNSON
  Company Number: US-JNJFOC-20241114920

PATIENT
  Sex: Male

DRUGS (2)
  1. CONCERTA [Suspect]
     Active Substance: METHYLPHENIDATE HYDROCHLORIDE
     Indication: Attention deficit hyperactivity disorder
     Dosage: 36 TO 54 MG WORKED WELL FOR 3 MONTHS
     Route: 048
  2. CONCERTA [Suspect]
     Active Substance: METHYLPHENIDATE HYDROCHLORIDE
     Indication: Oppositional defiant disorder
     Dosage: HALF TABLET TWICE A DAY FOR 2 DAYS AND THEN 1 TABLET ORALLY DAILY
     Route: 048
     Dates: start: 20121210

REACTIONS (2)
  - Decreased appetite [Unknown]
  - Weight decreased [Unknown]
